FAERS Safety Report 6155585-4 (Version None)
Quarter: 2009Q2

REPORT INFORMATION
  Report Type: 
  Country: None (occurrence: None)
  Receive Date: 20090413
  Receipt Date: 20090225
  Transmission Date: 20091009
  Serious: Yes (Disabling)
  Sender: FDA-Public Use
  Company Number: SP02183

PATIENT
  Age: 56 Year
  Sex: Female

DRUGS (10)
  1. MOVIPREP [Suspect]
     Indication: COLONOSCOPY
     Dosage: (2 LIT), ORAL
     Route: 048
     Dates: start: 20081110, end: 20081110
  2. CALCIUM [Concomitant]
  3. RITUXIMAB [Concomitant]
  4. PREDNISONE [Concomitant]
  5. ARAVA [Concomitant]
  6. NEURONTIN [Concomitant]
  7. FOSAMAX [Concomitant]
  8. FISH OIL [Concomitant]
  9. MULTI-VITAMIN [Concomitant]
  10. METHOTREXATE [Concomitant]

REACTIONS (16)
  - ABDOMINAL DISTENSION [None]
  - ABDOMINAL PAIN LOWER [None]
  - ABNORMAL FAECES [None]
  - CHANGE OF BOWEL HABIT [None]
  - DIARRHOEA [None]
  - EXTRAVASATION [None]
  - FAECAL INCONTINENCE [None]
  - FLATULENCE [None]
  - FREQUENT BOWEL MOVEMENTS [None]
  - GASTROINTESTINAL SOUNDS ABNORMAL [None]
  - GASTROOESOPHAGEAL REFLUX DISEASE [None]
  - HIATUS HERNIA [None]
  - IRRITABLE BOWEL SYNDROME [None]
  - MUCOUS STOOLS [None]
  - OEDEMA [None]
  - PROCEDURAL COMPLICATION [None]
